FAERS Safety Report 16811890 (Version 1)
Quarter: 2019Q3

REPORT INFORMATION
  Report Type: Spontaneous
  Country: US (occurrence: US)
  Receive Date: 20190916
  Receipt Date: 20190916
  Transmission Date: 20191005
  Serious: No
  Sender: FDA-Public Use
  Company Number: US-009507513-1909USA002969

PATIENT
  Age: 30 Year
  Sex: Female

DRUGS (2)
  1. NEXPLANON [Suspect]
     Active Substance: ETONOGESTREL
     Dosage: 1 ROD
     Route: 059
     Dates: start: 20190801, end: 20190828
  2. NEXPLANON [Suspect]
     Active Substance: ETONOGESTREL
     Dosage: 1 ROD
     Route: 059
     Dates: start: 2019

REACTIONS (4)
  - Complication of device removal [Recovered/Resolved]
  - Implant site pain [Recovered/Resolved]
  - Erythema [Recovered/Resolved]
  - Medical device site discomfort [Recovered/Resolved]

NARRATIVE: CASE EVENT DATE: 2019
